FAERS Safety Report 15903912 (Version 1)
Quarter: 2019Q1

REPORT INFORMATION
  Report Type: Spontaneous
  Country: DE (occurrence: DE)
  Receive Date: 20190204
  Receipt Date: 20190204
  Transmission Date: 20190417
  Serious: Yes (Hospitalization)
  Sender: FDA-Public Use
  Company Number: DE-ACCORD-105534

PATIENT
  Age: 84 Year
  Sex: Female
  Weight: 60 kg

DRUGS (13)
  1. RAMIPRIL. [Suspect]
     Active Substance: RAMIPRIL
     Indication: PRODUCT USED FOR UNKNOWN INDICATION
     Dosage: 5, 25 MG, 1-0-0.5-0, TABLETS
     Route: 048
  2. CARBAMAZEPINE. [Concomitant]
     Active Substance: CARBAMAZEPINE
     Dosage: 300 MG, 0.5-0-0.5-0, RETARD-TABLETS
     Route: 048
  3. MACROGOL/POTASSIUM CHLORIDE/SODIUM BICARBONATE/SODIUM CHLORIDE [Concomitant]
     Dosage: 1-0-0-0, PACKET
     Route: 048
  4. KOCHSALZ [Concomitant]
     Dosage: 1000 MG, 1-0-1-0, TABLETS
     Route: 048
  5. AMLODIPINE [Suspect]
     Active Substance: AMLODIPINE BESYLATE
     Indication: PRODUCT USED FOR UNKNOWN INDICATION
     Dosage: 10 MG, 0-0-1-0, TABLETS
     Route: 048
  6. ACETYLSALICYLIC ACID [Concomitant]
     Active Substance: ASPIRIN
     Dosage: 100 MG, 1-0-0-0, TABLETS
     Route: 048
  7. PANTOPRAZOLE [Concomitant]
     Active Substance: PANTOPRAZOLE
     Dosage: 40 MG, 1-0-0-0, TABLETS
     Route: 048
  8. FOLSAN [Concomitant]
     Active Substance: FOLIC ACID
     Dosage: 5 MG, 1-0-0-0, TABLETS
     Route: 048
  9. KEPPRA [Concomitant]
     Active Substance: LEVETIRACETAM
     Dosage: STRENGTH:1000 MG, 1-0-1-0, TABLETS
     Route: 048
  10. METOPROLOL ABZ [Suspect]
     Active Substance: METOPROLOL TARTRATE
     Indication: PRODUCT USED FOR UNKNOWN INDICATION
     Dosage: 50 MG, 0.5-0-0-0, TABLETS
     Route: 048
  11. L-THYROX HEXAL [Concomitant]
     Active Substance: LEVOTHYROXINE SODIUM
     Dosage: 112 MICROGRAM, 1-0-0-0, TABLETS
     Route: 048
  12. SPASMEX [Concomitant]
     Dosage: STRENGTH : 30 MG, 0-0-1-0, TABLETS
     Route: 048
  13. SORTIS [Concomitant]
     Active Substance: ATORVASTATIN
     Dosage: STRENGTH : 20 MG, 0-0-1-0, TABLETS
     Route: 048

REACTIONS (5)
  - Orthostatic intolerance [Recovered/Resolved]
  - Hypotension [Recovered/Resolved]
  - Wrong product administered [Unknown]
  - Circulatory collapse [Recovered/Resolved]
  - Dehydration [Recovered/Resolved]

NARRATIVE: CASE EVENT DATE: 20161101
